FAERS Safety Report 5907740-3 (Version None)
Quarter: 2008Q4

REPORT INFORMATION
  Report Type: 
  Country: None (occurrence: None)
  Receive Date: 20081003
  Receipt Date: 20080926
  Transmission Date: 20090506
  Serious: Yes (Death)
  Sender: FDA-Public Use
  Company Number: AU-ROCHE-576055

PATIENT
  Sex: Male
  Weight: 122 kg

DRUGS (3)
  1. CAPECITABINE [Suspect]
     Dosage: CYCLE 21, LAST DOSE DATE OF CYCLE:20 MARCH 2008, FREQUENCY:DAILY
     Route: 048
     Dates: start: 20061212, end: 20080408
  2. AVASTIN [Suspect]
     Dosage: CYCLE 21, 910MG ON DAY 1, BEVACIZUMAB CEASED.
     Route: 042
  3. CLEXANE [Concomitant]
     Indication: PROPHYLAXIS
     Dosage: ROUTE:IM/SC
     Route: 058
     Dates: start: 20070312, end: 20080408

REACTIONS (1)
  - SUBDURAL HAEMORRHAGE [None]
